FAERS Safety Report 7532899-4 (Version None)
Quarter: 2011Q2

REPORT INFORMATION
  Report Type: 
  Country: None (occurrence: None)
  Receive Date: 20110608
  Receipt Date: 20110603
  Transmission Date: 20111010
  Serious: Yes (Other)
  Sender: FDA-Public Use
  Company Number: US-ABBOTT-11P-163-0730454-00

PATIENT
  Sex: Female
  Weight: 61.29 kg

DRUGS (2)
  1. HUMIRA [Suspect]
     Dates: start: 20080301
  2. HUMIRA [Suspect]
     Indication: RHEUMATOID ARTHRITIS
     Dates: start: 20071201

REACTIONS (10)
  - SINUS DISORDER [None]
  - INJECTION SITE PAIN [None]
  - SINUS CONGESTION [None]
  - PLEURISY [None]
  - INJECTION SITE HAEMATOMA [None]
  - INJECTION SITE HAEMORRHAGE [None]
  - CHEST PAIN [None]
  - NASAL CONGESTION [None]
  - DYSPNOEA [None]
  - PYREXIA [None]
